FAERS Safety Report 9055276 (Version 2)
Quarter: 2013Q1

REPORT INFORMATION
  Report Type: Report from Study
  Country: US (occurrence: US)
  Receive Date: 20130206
  Receipt Date: 20130215
  Transmission Date: 20140127
  Serious: No
  Sender: FDA-Public Use
  Company Number: US-VERTEX PHARMACEUTICALS INC.-2013-001572

PATIENT
  Sex: Male
  Weight: 125 kg

DRUGS (8)
  1. VX-950 (TELAPREVIR) [Suspect]
     Indication: HEPATITIS C
     Dosage: 750 MG, TID
     Route: 048
     Dates: start: 2013
  2. PEGINTRON [Suspect]
     Indication: HEPATITIS C
     Dosage: 150 ?G, QW
     Route: 058
     Dates: start: 2013
  3. RIBASPHERE [Suspect]
     Indication: HEPATITIS C
     Dosage: 600 MG, BID
     Route: 048
     Dates: start: 2013
  4. PANTOPRAZOLE SOD [Concomitant]
     Dosage: 40 MG, QD
     Route: 048
  5. FUROSEMIDE [Concomitant]
     Dosage: 20 MG, QD
     Route: 048
  6. NADOLOL [Concomitant]
     Dosage: 20 MG, QD
     Route: 048
  7. SPIRONOLACTONE [Concomitant]
     Dosage: 50 MG, QD
     Route: 048
  8. MULTIVITAMIN [Concomitant]
     Dosage: 1 DF, QD
     Route: 048

REACTIONS (3)
  - Stupor [Unknown]
  - Feeling abnormal [Unknown]
  - Fatigue [Unknown]
